FAERS Safety Report 12709353 (Version 2)
Quarter: 2016Q3

REPORT INFORMATION
  Report Type: Spontaneous
  Country: US (occurrence: US)
  Receive Date: 20160901
  Receipt Date: 20160908
  Transmission Date: 20161109
  Serious: Yes (Other)
  Sender: FDA-Public Use
  Company Number: US-MUNDIPHARMA DS AND PHARMACOVIGILANCE-USA-2016-0133227

PATIENT
  Sex: Female

DRUGS (2)
  1. BETADINE [Suspect]
     Active Substance: POVIDONE-IODINE
     Indication: PRODUCT USED FOR UNKNOWN INDICATION
     Dosage: UNK, SINGLE
     Route: 031
     Dates: start: 20160825, end: 20160825
  2. BETADINE [Suspect]
     Active Substance: POVIDONE-IODINE
     Dosage: UNK, SINGLE
     Route: 031
     Dates: start: 20160715, end: 20160715

REACTIONS (6)
  - Eyelid oedema [Not Recovered/Not Resolved]
  - Blister [Unknown]
  - Eye pain [Not Recovered/Not Resolved]
  - Superficial injury of eye [Not Recovered/Not Resolved]
  - Visual impairment [Recovering/Resolving]
  - Eye disorder [Not Recovered/Not Resolved]

NARRATIVE: CASE EVENT DATE: 20160716
